FAERS Safety Report 4300570-8 (Version None)
Quarter: 2004Q1

REPORT INFORMATION
  Report Type: 
  Country: None (occurrence: None)
  Receive Date: 20040219
  Receipt Date: 20040219
  Transmission Date: 20041129
  Serious: Yes (Hospitalization)
  Sender: FDA-Public Use
  Company Number: None

PATIENT
  Age: 35 Year
  Sex: Female

DRUGS (3)
  1. CHLORTRIMETRON [Suspect]
  2. PAXIL [Suspect]
  3. . [Concomitant]

REACTIONS (3)
  - INTENTIONAL OVERDOSE [None]
  - NAUSEA [None]
  - VISION BLURRED [None]
